FAERS Safety Report 21926661 (Version 2)
Quarter: 2023Q1

REPORT INFORMATION
  Report Type: Spontaneous
  Country: US (occurrence: US)
  Receive Date: 20230130
  Receipt Date: 20230219
  Transmission Date: 20230418
  Serious: No
  Sender: FDA-Public Use
  Company Number: US-BIOVITRUM-2023US01196

PATIENT
  Age: 0 Year
  Sex: Female
  Weight: 6 kg

DRUGS (7)
  1. SYNAGIS [Suspect]
     Active Substance: PALIVIZUMAB
     Indication: Premature baby
  2. CIPROFLOXACIN 250 MG/5ML SUS MC REC [Concomitant]
     Dosage: 250 MG/5ML
  3. OMEPRAZOLE 10 MG CAPSULE DR [Concomitant]
  4. SYNTHROID 75 MCG TABLET [Concomitant]
  5. MULTIVITAMIN-IRON-FLUORIDE [Concomitant]
  6. SYNAGIS [Suspect]
     Active Substance: PALIVIZUMAB
     Indication: Lung disorder
  7. EPINEPHRINE [Concomitant]
     Active Substance: EPINEPHRINE

REACTIONS (1)
  - Medical device site infection [Not Recovered/Not Resolved]

NARRATIVE: CASE EVENT DATE: 20230101
